FAERS Safety Report 7126366-X (Version None)
Quarter: 2010Q4

REPORT INFORMATION
  Report Type: 
  Country: None (occurrence: None)
  Receive Date: 20101112
  Receipt Date: 20101028
  Transmission Date: 20110411
  Serious: Yes (Hospitalization)
  Sender: FDA-Public Use
  Company Number: AUR-APL-2010-02159

PATIENT
  Age: 58 Year
  Sex: Male
  Weight: 124 kg

DRUGS (6)
  1. METOPROLOL SUCCINATE [Suspect]
  2. SORABENIB [Suspect]
     Indication: RENAL CELL CARCINOMA
     Dosage: 16000MG, DAILY, ORAL
     Route: 048
     Dates: start: 20100801
  3. SUNITINIB MALATE [Suspect]
     Indication: RENAL CELL CARCINOMA
     Dosage: 1050MG
     Dates: start: 20100720
  4. LOTREL [Concomitant]
  5. NIFEDIPINE [Concomitant]
  6. ROSIGLITAZONE MALEATE [Concomitant]

REACTIONS (1)
  - ACUTE MYOCARDIAL INFARCTION [None]
